FAERS Safety Report 21191597 (Version 1)
Quarter: 2022Q3

REPORT INFORMATION
  Report Type: Spontaneous
  Country: US (occurrence: US)
  Receive Date: 20220809
  Receipt Date: 20220809
  Transmission Date: 20221026
  Serious: No
  Sender: FDA-Public Use
  Company Number: US-JOURNEY MEDICAL CORPORATION-2022JNY00694

PATIENT
  Age: 70 Year
  Sex: Female
  Weight: 50.34 kg

DRUGS (12)
  1. AMZEEQ [Suspect]
     Active Substance: MINOCYCLINE HYDROCHLORIDE
     Indication: Rosacea
     Dosage: APPLY 1X/DAY TOPICALLY IN THE EVENING
     Route: 061
     Dates: start: 20211109, end: 20220617
  2. AZELAIC ACID [Suspect]
     Active Substance: AZELAIC ACID
     Indication: Rosacea
     Dosage: UNK
     Dates: start: 202206
  3. ZYRTEC [Concomitant]
     Active Substance: CETIRIZINE HYDROCHLORIDE
  4. AMITRIPTYLINE [Concomitant]
     Active Substance: AMITRIPTYLINE
     Dosage: UNK, 1X/DAY AT BEDTIME
  5. TOPIRAMATE [Concomitant]
     Active Substance: TOPIRAMATE
  6. LIBRAX [Concomitant]
     Active Substance: CHLORDIAZEPOXIDE HYDROCHLORIDE\CLIDINIUM BROMIDE
  7. OMEPRAZOLE [Concomitant]
     Active Substance: OMEPRAZOLE
  8. VITAMINS [Concomitant]
     Active Substance: VITAMINS
  9. HERBALS\TURMERIC [Concomitant]
     Active Substance: HERBALS\TURMERIC
  10. CHEMICAL FREE SOAP [Concomitant]
     Route: 061
  11. MILK LOTION [Concomitant]
     Dosage: UNK
     Route: 061
  12. IVERMECTIN [Concomitant]
     Active Substance: IVERMECTIN
     Dosage: UNK, 1X/DAY IN THE MORNING
     Route: 061

REACTIONS (6)
  - Burning sensation [Not Recovered/Not Resolved]
  - Rosacea [Not Recovered/Not Resolved]
  - Off label use [Recovered/Resolved]
  - Product dose omission issue [Not Recovered/Not Resolved]
  - Product substitution issue [Not Recovered/Not Resolved]
  - Dry skin [Not Recovered/Not Resolved]

NARRATIVE: CASE EVENT DATE: 20211109
